FAERS Safety Report 10211684 (Version 3)
Quarter: 2014Q3

REPORT INFORMATION
  Report Type: Spontaneous
  Country: US (occurrence: None)
  Receive Date: 20140528
  Receipt Date: 20140709
  Transmission Date: 20150326
  Serious: Yes (Hospitalization)
  Sender: FDA-Public Use
  Company Number: UNT-2014-000845

PATIENT
  Age: 70 Year
  Sex: Female
  Weight: 62.6 kg

DRUGS (4)
  1. REMODULIN [Suspect]
     Active Substance: TREPROSTINIL
     Indication: PULMONARY ARTERIAL HYPERTENSION
     Dosage: 0.06 UG/KG, CONTINUING, IV DRIP
     Route: 041
     Dates: start: 20140110
  2. WARFARIN (WARFARIN) [Concomitant]
     Active Substance: WARFARIN
  3. LETAIRIS [Concomitant]
     Active Substance: AMBRISENTAN
  4. REVATIO [Concomitant]
     Active Substance: SILDENAFIL CITRATE

REACTIONS (2)
  - Hysterectomy [None]
  - Endometrial cancer stage III [None]

NARRATIVE: CASE EVENT DATE: 20140507
